FAERS Safety Report 4720199-7 (Version None)
Quarter: 2005Q3

REPORT INFORMATION
  Report Type: 
  Country: None (occurrence: None)
  Receive Date: 20050719
  Receipt Date: 20050705
  Transmission Date: 20060218
  Serious: Yes (Death, Life-Threatening, Hospitalization)
  Sender: FDA-Public Use
  Company Number: 2005EU000961

PATIENT
  Age: 44 Year
  Sex: Female

DRUGS (8)
  1. FK506 (TACROLIMUS CAPSULES) [Suspect]
     Indication: LIVER TRANSPLANT
     Dosage: 2.00 MG, UID/QD, ORAL
     Route: 048
     Dates: start: 20050420
  2. DACLIZUMAB(DACLIZUMAB) [Suspect]
     Indication: LIVER TRANSPLANT
     Dosage: 100.00MG, UNKNOWN/D, IV NOS
     Route: 042
     Dates: start: 20050415, end: 20050422
  3. MYCOPHENOLATE MOFETIL(MYCOPHENOLATE MOFETIL) [Suspect]
     Indication: LIVER TRANSPLANT
     Dosage: 1000.00 MG, UID/QD, IV NOS - SEE IMAGE
     Route: 042
     Dates: start: 20050415, end: 20050419
  4. MYCOPHENOLATE MOFETIL(MYCOPHENOLATE MOFETIL) [Suspect]
     Indication: LIVER TRANSPLANT
     Dosage: 1000.00 MG, UID/QD, IV NOS - SEE IMAGE
     Route: 042
     Dates: start: 20050420
  5. PREDNISONE [Suspect]
     Indication: LIVER TRANSPLANT
     Dosage: 10.00 MG, UID/QD, UNK
     Dates: start: 20050418, end: 20050527
  6. TAZOCIN (PIPERACILLIN SODIUM, TAZOBACTAM SODIUM) [Concomitant]
  7. FLUCONAZOLE [Concomitant]
  8. CALCIUM CHLORIDE ^SPOFA^ (CALCIUM CHLORIDE HEXAHYDRATE) [Concomitant]

REACTIONS (12)
  - ABDOMINAL SEPSIS [None]
  - ASCITES [None]
  - COMPLICATIONS OF TRANSPLANTED LIVER [None]
  - ESCHERICHIA INFECTION [None]
  - HAEMATEMESIS [None]
  - HAEMOGLOBIN DECREASED [None]
  - LACERATION [None]
  - MULTI-ORGAN FAILURE [None]
  - PLEURAL EFFUSION [None]
  - PNEUMONIA [None]
  - RENAL IMPAIRMENT [None]
  - SMALL INTESTINAL HAEMORRHAGE [None]
